FAERS Safety Report 15735959 (Version 2)
Quarter: 2019Q2

REPORT INFORMATION
  Report Type: Spontaneous
  Country: US (occurrence: US)
  Receive Date: 20181218
  Receipt Date: 20190625
  Transmission Date: 20190711
  Serious: No
  Sender: FDA-Public Use
  Company Number: US-MYLANLABS-2018M1090718

PATIENT
  Sex: Male
  Weight: 111 kg

DRUGS (1)
  1. ALBUTEROL SULFATE INHALATION SOLUTION [Suspect]
     Active Substance: ALBUTEROL SULFATE
     Indication: EMPHYSEMA
     Dosage: UNK UNK, QID
     Route: 048

REACTIONS (2)
  - Expired product administered [Not Recovered/Not Resolved]
  - Drug ineffective [Not Recovered/Not Resolved]
